FAERS Safety Report 7553949-5 (Version None)
Quarter: 2011Q2

REPORT INFORMATION
  Report Type: 
  Country: None (occurrence: None)
  Receive Date: 20110609
  Receipt Date: 20110603
  Transmission Date: 20111010
  Serious: No
  Sender: FDA-Public Use
  Company Number: 2011-00513

PATIENT
  Sex: Male

DRUGS (4)
  1. ZICAM COLD REMEDY NASAL GEL [Suspect]
     Dates: start: 20050601
  2. ZICAM COLD REMEDY NASAL GEL [Suspect]
     Dates: start: 20050601
  3. ZICAM COLD REMEDY NASAL GEL [Suspect]
     Dates: start: 20050601
  4. ZICAM COLD REMEDY NASAL GEL [Suspect]
     Dates: start: 20050601

REACTIONS (2)
  - AGEUSIA [None]
  - ANOSMIA [None]
